FAERS Safety Report 18844068 (Version 1)
Quarter: 2021Q1

REPORT INFORMATION
  Report Type: Report from Study
  Country: US (occurrence: US)
  Receive Date: 20210203
  Receipt Date: 20210203
  Transmission Date: 20210419
  Serious: No
  Sender: FDA-Public Use
  Company Number: US-EXELIXIS-CABO-20029809

PATIENT
  Sex: Male

DRUGS (10)
  1. METOPROLOL SUCCINATE. [Concomitant]
     Active Substance: METOPROLOL SUCCINATE
  2. CABOMETYX [Suspect]
     Active Substance: CABOZANTINIB S-MALATE
     Indication: RENAL CELL CARCINOMA STAGE IV
     Dosage: 60 MG
  3. CABOMETYX [Suspect]
     Active Substance: CABOZANTINIB S-MALATE
     Dosage: 40 MG
  4. PREVACID [Concomitant]
     Active Substance: LANSOPRAZOLE
  5. LEVOTHROID [Concomitant]
     Active Substance: LEVOTHYROXINE SODIUM
  6. FINASTERIDE. [Concomitant]
     Active Substance: FINASTERIDE
  7. CABOMETYX [Suspect]
     Active Substance: CABOZANTINIB S-MALATE
     Dosage: 20 MG
     Dates: end: 201909
  8. KEYTRUDA [Concomitant]
     Active Substance: PEMBROLIZUMAB
  9. REGLAN [Concomitant]
     Active Substance: METOCLOPRAMIDE HYDROCHLORIDE
  10. DILTIAZEM CD [Concomitant]
     Active Substance: DILTIAZEM

REACTIONS (4)
  - Gastrointestinal disorder [Recovered/Resolved]
  - Diarrhoea [Recovered/Resolved]
  - Nausea [Recovered/Resolved]
  - Skin ulcer [Recovered/Resolved]
